FAERS Safety Report 25131611 (Version 5)
Quarter: 2025Q3

REPORT INFORMATION
  Report Type: Report from Study
  Country: US (occurrence: US)
  Receive Date: 20250327
  Receipt Date: 20250701
  Transmission Date: 20251021
  Serious: Yes (Hospitalization, Other)
  Sender: TAIHO ONCOLOGY INC
  Company Number: US-TAIHOP-2025-001119

PATIENT
  Age: 62 Year
  Sex: Female
  Weight: 65.77 kg

DRUGS (13)
  1. LYTGOBI [Suspect]
     Active Substance: FUTIBATINIB
     Indication: Cholangiocarcinoma
     Route: 048
     Dates: start: 202501
  2. LYTGOBI [Suspect]
     Active Substance: FUTIBATINIB
     Route: 048
     Dates: start: 20250118
  3. PROCHLORPERAZINE MALEATE [Concomitant]
     Active Substance: PROCHLORPERAZINE MALEATE
     Indication: Product used for unknown indication
     Route: 048
  4. ZOLPIDEM TARTRATE [Concomitant]
     Active Substance: ZOLPIDEM TARTRATE
     Indication: Product used for unknown indication
     Route: 048
  5. ONDANSETRON HYDROCHLORIDE [Concomitant]
     Active Substance: ONDANSETRON HYDROCHLORIDE
     Indication: Product used for unknown indication
     Route: 048
  6. ONDANSETRON HYDROCHLORIDE [Concomitant]
     Active Substance: ONDANSETRON HYDROCHLORIDE
  7. MINOCYCLINE HYDROCHLORIDE [Concomitant]
     Active Substance: MINOCYCLINE HYDROCHLORIDE
     Indication: Product used for unknown indication
     Route: 048
  8. PANTOPRAZOLE SODIUM [Concomitant]
     Active Substance: PANTOPRAZOLE SODIUM
     Indication: Product used for unknown indication
     Dosage: DEL
     Route: 048
  9. SENNA-PLUS [Concomitant]
     Active Substance: DOCUSATE SODIUM\SENNOSIDES
     Indication: Product used for unknown indication
     Dosage: 8.6-50 MG
     Route: 048
  10. TUMS ULTRA [Concomitant]
     Active Substance: CALCIUM CARBONATE
     Indication: Product used for unknown indication
     Route: 048
  11. TUMS ULTRA [Concomitant]
     Active Substance: CALCIUM CARBONATE
     Route: 048
  12. CALCIUM CARBONATE [Concomitant]
     Active Substance: CALCIUM CARBONATE
     Indication: Product used for unknown indication
  13. ARNICARE [Concomitant]
     Active Substance: HOMEOPATHICS
     Indication: Product used for unknown indication

REACTIONS (23)
  - Neuropathy peripheral [Recovering/Resolving]
  - Abdominal pain upper [Unknown]
  - Paracentesis [Unknown]
  - Disease progression [Unknown]
  - Paraesthesia [Recovering/Resolving]
  - Myalgia [Recovering/Resolving]
  - Bone pain [Not Recovered/Not Resolved]
  - Asthenia [Recovering/Resolving]
  - Constipation [Not Recovered/Not Resolved]
  - Diarrhoea [Not Recovered/Not Resolved]
  - Dysphonia [Not Recovered/Not Resolved]
  - Rash [Not Recovered/Not Resolved]
  - Nail discolouration [Recovering/Resolving]
  - Onychoclasis [Recovering/Resolving]
  - Nail infection [Recovering/Resolving]
  - Arthralgia [Recovering/Resolving]
  - Sensitive skin [Recovering/Resolving]
  - Onycholysis [Recovering/Resolving]
  - Dry mouth [Recovering/Resolving]
  - Dry eye [Recovering/Resolving]
  - Dry skin [Recovering/Resolving]
  - Nail hypertrophy [Recovering/Resolving]
  - Eye swelling [Recovering/Resolving]
